FAERS Safety Report 19891201 (Version 1)
Quarter: 2021Q3

REPORT INFORMATION
  Report Type: Spontaneous
  Country: US (occurrence: US)
  Receive Date: 20210928
  Receipt Date: 20210928
  Transmission Date: 20211014
  Serious: Yes (Hospitalization, Other)
  Sender: FDA-Public Use
  Company Number: US-PFIZER INC-202101221566

PATIENT
  Age: 58 Year
  Sex: Female

DRUGS (2)
  1. FASLODEX [Suspect]
     Active Substance: FULVESTRANT
     Dosage: UNK
  2. IBRANCE [Suspect]
     Active Substance: PALBOCICLIB
     Indication: BREAST CANCER FEMALE
     Dosage: 125 MG
     Dates: start: 20210720, end: 202109

REACTIONS (11)
  - Dehydration [Unknown]
  - Neutropenia [Recovering/Resolving]
  - Dyspnoea [Unknown]
  - Constipation [Unknown]
  - Neoplasm progression [Unknown]
  - Vomiting [Recovering/Resolving]
  - Decreased appetite [Unknown]
  - Hydronephrosis [Unknown]
  - Hot flush [Recovering/Resolving]
  - Asthenia [Unknown]
  - Pain [Unknown]
